FAERS Safety Report 7963619-7 (Version None)
Quarter: 2011Q4

REPORT INFORMATION
  Report Type: 
  Country: None (occurrence: None)
  Receive Date: 20111208
  Receipt Date: 20111111
  Transmission Date: 20120403
  Serious: No
  Sender: FDA-Public Use
  Company Number: US-BAYER-2011-110463

PATIENT
  Age: 18 Year
  Sex: Female
  Weight: 43.084 kg

DRUGS (2)
  1. MIDOL MENSTRUAL COMPLETE CAPLETS [Suspect]
     Indication: DYSMENORRHOEA
     Route: 048
  2. ALEVE (CAPLET) [Suspect]
     Indication: DYSMENORRHOEA
     Dosage: 1 CAPLET QD
     Route: 048
     Dates: start: 20111110, end: 20111110

REACTIONS (2)
  - TREMOR [None]
  - DYSMENORRHOEA [None]
